FAERS Safety Report 10482271 (Version 1)
Quarter: 2014Q3

REPORT INFORMATION
  Report Type: Spontaneous
  Country: GB (occurrence: GB)
  Receive Date: 20140929
  Receipt Date: 20140929
  Transmission Date: 20150326
  Serious: Yes (Other)
  Sender: FDA-Public Use
  Company Number: GB-PFIZER INC-2014262373

PATIENT
  Age: 29 Year
  Sex: Female
  Weight: 137 kg

DRUGS (2)
  1. BUPROPION [Concomitant]
     Active Substance: BUPROPION
     Dosage: UNK
  2. LYRICA [Suspect]
     Active Substance: PREGABALIN
     Indication: DEPRESSION
     Dosage: 25 MG, UNK
     Route: 048
     Dates: start: 20140910, end: 20140910

REACTIONS (6)
  - Hypoaesthesia [Not Recovered/Not Resolved]
  - Dissociation [Recovering/Resolving]
  - Peripheral coldness [Recovered/Resolved]
  - Feeling abnormal [Recovered/Resolved]
  - Paraesthesia [Not Recovered/Not Resolved]
  - Fatigue [Recovering/Resolving]

NARRATIVE: CASE EVENT DATE: 20140910
